FAERS Safety Report 5638588-5 (Version None)
Quarter: 2008Q1

REPORT INFORMATION
  Report Type: 
  Country: None (occurrence: None)
  Receive Date: 20080221
  Receipt Date: 20080221
  Transmission Date: 20080703
  Serious: No
  Sender: FDA-Public Use
  Company Number: None

PATIENT
  Age: 78 Year
  Sex: Male
  Weight: 92.0802 kg

DRUGS (1)
  1. CLINDAMYCIN HCL [Suspect]
     Indication: CARDIAC PACEMAKER INSERTION
     Dosage: 4 CAPSULES  TWO TIMES  PO
     Route: 048
     Dates: start: 20080214, end: 20080214

REACTIONS (2)
  - DIARRHOEA [None]
  - INFLUENZA [None]
